FAERS Safety Report 12737265 (Version 3)
Quarter: 2016Q4

REPORT INFORMATION
  Report Type: Report from Study
  Country: JP (occurrence: JP)
  Receive Date: 20160913
  Receipt Date: 20161017
  Transmission Date: 20170207
  Serious: Yes (Hospitalization)
  Sender: FDA-Public Use
  Company Number: JP-CELGENEUS-JPN-2016091078

PATIENT
  Age: 82 Year
  Sex: Female
  Weight: 45.9 kg

DRUGS (59)
  1. DEXAMETHASONE. [Suspect]
     Active Substance: DEXAMETHASONE
     Route: 041
     Dates: start: 20160204
  2. ACETAMINOPHEN. [Concomitant]
     Active Substance: ACETAMINOPHEN
     Dosage: 500
     Route: 048
     Dates: start: 20160212
  3. DIPHENHYDRAMINE. [Concomitant]
     Active Substance: DIPHENHYDRAMINE
     Dosage: 50
     Route: 048
     Dates: start: 20160609
  4. RANITIDINE. [Concomitant]
     Active Substance: RANITIDINE
     Dosage: 50
     Route: 041
     Dates: start: 20160526
  5. ACETAMINOPHEN. [Concomitant]
     Active Substance: ACETAMINOPHEN
     Dosage: 500
     Route: 048
     Dates: start: 20160310
  6. ACETAMINOPHEN. [Concomitant]
     Active Substance: ACETAMINOPHEN
     Dosage: 500
     Route: 048
     Dates: start: 20160714
  7. DIPHENHYDRAMINE. [Concomitant]
     Active Substance: DIPHENHYDRAMINE
     Dosage: 50
     Route: 048
     Dates: start: 20160810
  8. RANITIDINE. [Concomitant]
     Active Substance: RANITIDINE
     Dosage: 50
     Route: 041
     Dates: start: 20160428
  9. CHLORPHENIRAMINE. [Concomitant]
     Active Substance: CHLORPHENIRAMINE
     Indication: PRODUCT USED FOR UNKNOWN INDICATION
     Route: 065
     Dates: start: 20160205
  10. VALACICLOVIR [Concomitant]
     Active Substance: VALACYCLOVIR HYDROCHLORIDE
     Indication: PRODUCT USED FOR UNKNOWN INDICATION
     Route: 065
     Dates: start: 20160229
  11. POTASSIUM GLUCONATE [Concomitant]
     Active Substance: POTASSIUM GLUCONATE
     Indication: ADVERSE EVENT
     Route: 065
     Dates: start: 20160714
  12. LACTIC ACID BACTERIAE [Concomitant]
     Indication: PRODUCT USED FOR UNKNOWN INDICATION
     Route: 065
  13. ACETAMINOPHEN. [Concomitant]
     Active Substance: ACETAMINOPHEN
     Dosage: 500
     Route: 048
     Dates: start: 20160317
  14. ACETAMINOPHEN. [Concomitant]
     Active Substance: ACETAMINOPHEN
     Dosage: 500
     Route: 048
     Dates: start: 20160414
  15. ACETAMINOPHEN. [Concomitant]
     Active Substance: ACETAMINOPHEN
     Dosage: 500
     Route: 048
     Dates: start: 20160428
  16. ACETAMINOPHEN. [Concomitant]
     Active Substance: ACETAMINOPHEN
     Dosage: 500
     Route: 048
     Dates: start: 20160818
  17. DIPHENHYDRAMINE. [Concomitant]
     Active Substance: DIPHENHYDRAMINE
     Dosage: 50
     Route: 048
     Dates: start: 20160212
  18. DIPHENHYDRAMINE. [Concomitant]
     Active Substance: DIPHENHYDRAMINE
     Dosage: 50
     Route: 048
     Dates: start: 20160428
  19. RANITIDINE. [Concomitant]
     Active Substance: RANITIDINE
     Dosage: 50
     Route: 041
     Dates: start: 20160310
  20. ASPIRIN. [Concomitant]
     Active Substance: ASPIRIN
     Indication: PRODUCT USED FOR UNKNOWN INDICATION
     Route: 065
     Dates: start: 20160204
  21. PREGABALIN. [Concomitant]
     Active Substance: PREGABALIN
     Indication: PRODUCT USED FOR UNKNOWN INDICATION
     Route: 065
     Dates: start: 20160804
  22. REVLIMID [Suspect]
     Active Substance: LENALIDOMIDE
     Indication: PLASMA CELL MYELOMA
     Dosage: 5 MILLIGRAM
     Route: 048
     Dates: start: 20160204
  23. ACETAMINOPHEN. [Concomitant]
     Active Substance: ACETAMINOPHEN
     Dosage: 500
     Route: 048
     Dates: start: 20160609
  24. ACETAMINOPHEN. [Concomitant]
     Active Substance: ACETAMINOPHEN
     Dosage: 500
     Route: 048
     Dates: start: 20160721
  25. DIPHENHYDRAMINE. [Concomitant]
     Active Substance: DIPHENHYDRAMINE
     Dosage: 50
     Route: 048
     Dates: start: 20160623
  26. DIPHENHYDRAMINE. [Concomitant]
     Active Substance: DIPHENHYDRAMINE
     Dosage: 50
     Route: 048
     Dates: start: 20160714
  27. RANITIDINE. [Concomitant]
     Active Substance: RANITIDINE
     Dosage: 50
     Route: 041
     Dates: start: 20160609
  28. CROTAMITON [Concomitant]
     Active Substance: CROTAMITON
     Indication: PRODUCT USED FOR UNKNOWN INDICATION
     Route: 065
     Dates: start: 20160118
  29. ESOMEPRAZOLE [Concomitant]
     Active Substance: ESOMEPRAZOLE
     Indication: PRODUCT USED FOR UNKNOWN INDICATION
     Route: 065
     Dates: start: 20160201
  30. ZOLEDRONIC ACID [Concomitant]
     Active Substance: ZOLEDRONIC ACID
     Indication: PRODUCT USED FOR UNKNOWN INDICATION
     Route: 065
     Dates: start: 20160302
  31. REBAMIPIDE [Concomitant]
     Active Substance: REBAMIPIDE
     Indication: PRODUCT USED FOR UNKNOWN INDICATION
     Route: 065
     Dates: start: 20160721
  32. ACETAMINOPHEN. [Concomitant]
     Active Substance: ACETAMINOPHEN
     Indication: PRODUCT USED FOR UNKNOWN INDICATION
     Dosage: 500
     Route: 048
     Dates: start: 20160204
  33. ACETAMINOPHEN. [Concomitant]
     Active Substance: ACETAMINOPHEN
     Dosage: 500
     Route: 048
     Dates: start: 20160526
  34. DIPHENHYDRAMINE. [Concomitant]
     Active Substance: DIPHENHYDRAMINE
     Indication: PRODUCT USED FOR UNKNOWN INDICATION
     Dosage: 50
     Route: 048
     Dates: start: 20160204
  35. ETIZOLAM [Concomitant]
     Active Substance: ETIZOLAM
     Indication: PRODUCT USED FOR UNKNOWN INDICATION
     Route: 065
  36. MAGNESIUM OXIDE. [Concomitant]
     Active Substance: MAGNESIUM OXIDE
     Indication: PRODUCT USED FOR UNKNOWN INDICATION
     Route: 065
     Dates: start: 20160509
  37. GENTAMICIN SULFATE. [Concomitant]
     Active Substance: GENTAMICIN SULFATE
     Indication: ADVERSE EVENT
     Route: 065
     Dates: start: 20160825
  38. ACETAMINOPHEN. [Concomitant]
     Active Substance: ACETAMINOPHEN
     Dosage: 500
     Route: 048
     Dates: start: 20160623
  39. DIPHENHYDRAMINE. [Concomitant]
     Active Substance: DIPHENHYDRAMINE
     Dosage: 50
     Route: 048
     Dates: start: 20160414
  40. DIPHENHYDRAMINE. [Concomitant]
     Active Substance: DIPHENHYDRAMINE
     Dosage: 50
     Route: 048
     Dates: start: 20160818
  41. RANITIDINE. [Concomitant]
     Active Substance: RANITIDINE
     Dosage: 50
     Route: 041
     Dates: start: 20160212
  42. RANITIDINE. [Concomitant]
     Active Substance: RANITIDINE
     Dosage: 50
     Route: 041
     Dates: start: 20160317
  43. RANITIDINE. [Concomitant]
     Active Substance: RANITIDINE
     Dosage: 50
     Route: 041
     Dates: start: 20160623
  44. LACTULOSE. [Concomitant]
     Active Substance: LACTULOSE
     Indication: ADVERSE EVENT
     Route: 065
     Dates: start: 20160214
  45. DEXAMETHASONE. [Suspect]
     Active Substance: DEXAMETHASONE
     Indication: PLASMA CELL MYELOMA
     Route: 048
     Dates: start: 20160204
  46. ACETAMINOPHEN. [Concomitant]
     Active Substance: ACETAMINOPHEN
     Dosage: 500
     Route: 048
     Dates: start: 20160810
  47. DIPHENHYDRAMINE. [Concomitant]
     Active Substance: DIPHENHYDRAMINE
     Dosage: 50
     Route: 048
     Dates: start: 20160310
  48. DIPHENHYDRAMINE. [Concomitant]
     Active Substance: DIPHENHYDRAMINE
     Dosage: 50
     Route: 048
     Dates: start: 20160317
  49. DIPHENHYDRAMINE. [Concomitant]
     Active Substance: DIPHENHYDRAMINE
     Dosage: 50
     Route: 048
     Dates: start: 20160721
  50. RANITIDINE. [Concomitant]
     Active Substance: RANITIDINE
     Indication: PRODUCT USED FOR UNKNOWN INDICATION
     Dosage: 50
     Route: 041
     Dates: start: 20160204
  51. RANITIDINE. [Concomitant]
     Active Substance: RANITIDINE
     Dosage: 50
     Route: 041
     Dates: start: 20160414
  52. FLUCONAZOLE. [Concomitant]
     Active Substance: FLUCONAZOLE
     Indication: PRODUCT USED FOR UNKNOWN INDICATION
     Route: 065
     Dates: start: 20160210
  53. ELOTUZUMAB. [Suspect]
     Active Substance: ELOTUZUMAB
     Indication: PLASMA CELL MYELOMA
     Route: 041
     Dates: start: 20160204
  54. DIPHENHYDRAMINE. [Concomitant]
     Active Substance: DIPHENHYDRAMINE
     Dosage: 50
     Route: 048
     Dates: start: 20160526
  55. AMLODIPINE [Concomitant]
     Active Substance: AMLODIPINE BESYLATE
     Indication: PRODUCT USED FOR UNKNOWN INDICATION
     Route: 065
  56. SENNOSIDE [Concomitant]
     Active Substance: SENNOSIDES
     Indication: ADVERSE EVENT
     Route: 065
     Dates: start: 20160204
  57. PICOSULFATE [Concomitant]
     Active Substance: SODIUM PICOSULFATE
     Indication: ADVERSE EVENT
     Route: 065
     Dates: start: 20160215
  58. KETOPROFEN. [Concomitant]
     Active Substance: KETOPROFEN
     Indication: PRODUCT USED FOR UNKNOWN INDICATION
     Route: 065
     Dates: start: 20160219
  59. LEVOFLOXACIN. [Concomitant]
     Active Substance: LEVOFLOXACIN
     Indication: PRODUCT USED FOR UNKNOWN INDICATION
     Route: 065
     Dates: start: 20160809

REACTIONS (1)
  - C-reactive protein increased [Recovered/Resolved]

NARRATIVE: CASE EVENT DATE: 20160901
